FAERS Safety Report 6833502-9 (Version None)
Quarter: 2010Q3

REPORT INFORMATION
  Report Type: 
  Country: None (occurrence: None)
  Receive Date: 20100712
  Receipt Date: 20070327
  Transmission Date: 20110219
  Serious: No
  Sender: FDA-Public Use
  Company Number: US-PFIZER INC-2007025248

PATIENT
  Sex: Male
  Weight: 77.11 kg

DRUGS (2)
  1. CHANTIX [Suspect]
     Indication: SMOKING CESSATION THERAPY
     Dates: start: 20070307
  2. CARDURA [Interacting]
     Indication: BENIGN PROSTATIC HYPERPLASIA
     Dates: start: 20060101

REACTIONS (4)
  - DRUG INTERACTION [None]
  - LIBIDO DECREASED [None]
  - POLLAKIURIA [None]
  - THERAPEUTIC RESPONSE DECREASED [None]
